FAERS Safety Report 5745021-1 (Version None)
Quarter: 2008Q2

REPORT INFORMATION
  Report Type: 
  Country: None (occurrence: None)
  Receive Date: 20080521
  Receipt Date: 20080514
  Transmission Date: 20081010
  Serious: Yes (Hospitalization, Other)
  Sender: FDA-Public Use
  Company Number: PHHY2008JP06494

PATIENT
  Age: 56 Year
  Sex: Female

DRUGS (2)
  1. OTC DRUGS [Concomitant]
  2. FLUVASTATIN SODIUM [Suspect]
     Indication: HYPERLIPIDAEMIA
     Dosage: UNK, UNK
     Route: 048

REACTIONS (5)
  - BIOPSY LIVER ABNORMAL [None]
  - BLOOD BILIRUBIN UNCONJUGATED INCREASED [None]
  - GILBERT'S SYNDROME [None]
  - HYPERBILIRUBINAEMIA [None]
  - LIVER DISORDER [None]
